FAERS Safety Report 8546685-X (Version None)
Quarter: 2012Q3

REPORT INFORMATION
  Report Type: 
  Country: None (occurrence: None)
  Receive Date: 20120727
  Receipt Date: 20120305
  Transmission Date: 20120928
  Serious: No
  Sender: FDA-Public Use
  Company Number: US-ASTRAZENECA-2012SE05569

PATIENT
  Age: 33 Year
  Sex: Female

DRUGS (9)
  1. SEROQUEL XR [Suspect]
     Indication: SCHIZOPHRENIA
     Route: 048
  2. SEROQUEL XR [Suspect]
     Indication: BIPOLAR DISORDER
     Route: 048
  3. SEROQUEL XR [Suspect]
     Indication: ANXIETY
     Route: 048
  4. SEROQUEL XR [Suspect]
     Route: 048
  5. SEROQUEL XR [Suspect]
     Route: 048
  6. SEROQUEL XR [Suspect]
     Route: 048
  7. SEROQUEL XR [Suspect]
     Indication: BIPOLAR I DISORDER
     Route: 048
  8. AMBIEN [Suspect]
     Route: 065
  9. SEROQUEL XR [Suspect]
     Route: 048

REACTIONS (3)
  - SOMNOLENCE [None]
  - DRUG DOSE OMISSION [None]
  - INSOMNIA [None]
